FAERS Safety Report 9575305 (Version 1)
Quarter: 2013Q4

REPORT INFORMATION
  Report Type: Spontaneous
  Country: US (occurrence: US)
  Receive Date: 20131001
  Receipt Date: 20131001
  Transmission Date: 20140711
  Serious: No
  Sender: FDA-Public Use
  Company Number: US-009507513-1309USA006709

PATIENT
  Sex: Male

DRUGS (2)
  1. TEMODAR [Suspect]
     Indication: BRAIN NEOPLASM
     Dosage: 250 MG, FOR 5 DAYS
     Route: 048
     Dates: start: 20130814, end: 20130818
  2. TEMODAR [Suspect]
     Dosage: UNK

REACTIONS (1)
  - Nonspecific reaction [Unknown]
